FAERS Safety Report 21962607 (Version 1)
Quarter: 2023Q1

REPORT INFORMATION
  Report Type: Report from Study
  Country: US (occurrence: US)
  Receive Date: 20230207
  Receipt Date: 20230207
  Transmission Date: 20230418
  Serious: Yes (Hospitalization, Other)
  Sender: FDA-Public Use
  Company Number: US-ORG100014127-2022000204

PATIENT
  Age: 58 Year
  Sex: Female

DRUGS (23)
  1. LYSODREN [Suspect]
     Active Substance: MITOTANE
     Indication: Adrenal gland cancer
     Dosage: 03 TABLETS TID
     Route: 048
     Dates: start: 20211214, end: 20220120
  2. LYSODREN [Suspect]
     Active Substance: MITOTANE
     Indication: Adrenal gland cancer
     Dosage: 03 TABLETS THREE TIMES DAILY
     Route: 048
     Dates: start: 20220131
  3. LYSODREN [Suspect]
     Active Substance: MITOTANE
     Indication: Adrenal gland cancer
     Dosage: 06 TABLETS DAILY
     Route: 048
     Dates: start: 202202
  4. LYSODREN [Suspect]
     Active Substance: MITOTANE
     Indication: Adrenal gland cancer
     Dosage: 04 TABLETS DAILY
     Route: 048
     Dates: start: 20220228
  5. LYSODREN [Suspect]
     Active Substance: MITOTANE
     Indication: Adrenal gland cancer
     Dosage: 01 TABLET BID
     Route: 048
     Dates: start: 2022
  6. LYSODREN [Suspect]
     Active Substance: MITOTANE
     Indication: Adrenal gland cancer
     Dosage: 03 TABLETS TID
     Route: 048
  7. Alprazolam Tab 0.25MG [Concomitant]
     Indication: Product used for unknown indication
     Dosage: 0.25 MG
  8. Edarbi Tab 0.25MG [Concomitant]
     Indication: Product used for unknown indication
  9. TRIAMCINOLONE ACETONIDE [Concomitant]
     Active Substance: TRIAMCINOLONE ACETONIDE
     Indication: Product used for unknown indication
  10. HYDROCORTISONE [Concomitant]
     Active Substance: HYDROCORTISONE
     Indication: Nausea
  11. IMODIUM [Concomitant]
     Active Substance: LOPERAMIDE HYDROCHLORIDE
     Indication: Product used for unknown indication
     Dosage: EVERY 4-5 DAYS
  12. AMLODIPINE [Concomitant]
     Active Substance: AMLODIPINE BESYLATE
     Indication: Product used for unknown indication
     Dosage: 2.5 MG
  13. CELECOXIB CAP 200MG [Concomitant]
     Indication: Product used for unknown indication
     Dosage: 200 MG
  14. CRESTOR TAB 40MG [Concomitant]
     Indication: Product used for unknown indication
     Dosage: 40 MG
  15. ENOXAPARIN INJ 40/0.4ML [Concomitant]
     Indication: Product used for unknown indication
     Dosage: 40/0.4 ML
  16. HYDROCHLOROT TAB 25M [Concomitant]
     Indication: Product used for unknown indication
     Dosage: 25 MG
  17. HYLATOPIC CRE PLUS [Concomitant]
     Indication: Product used for unknown indication
  18. LEVOTHYROXIN TAB 50MCG [Concomitant]
     Indication: Product used for unknown indication
     Dosage: 50 MICROGRAM
  19. METHOCARBAM TAB 750MG [Concomitant]
     Indication: Product used for unknown indication
     Dosage: 750 MG
  20. NEO/POLY/DEX OIN 0.1% OP [Concomitant]
     Indication: Product used for unknown indication
  21. ONDANSETRON TAB 8MG ODT [Concomitant]
     Indication: Product used for unknown indication
     Dosage: 8 MG
  22. TRAMADOL HCL TAB 50MG [Concomitant]
     Indication: Product used for unknown indication
     Dosage: 50 MG
  23. VITAMIN D CAP 1.25MG [Concomitant]
     Indication: Product used for unknown indication
     Dosage: 1.25 MG

REACTIONS (7)
  - Adrenal insufficiency [Not Recovered/Not Resolved]
  - Hordeolum [Not Recovered/Not Resolved]
  - Rash [Recovered/Resolved]
  - Dizziness [Not Recovered/Not Resolved]
  - Fatigue [Not Recovered/Not Resolved]
  - Nausea [Not Recovered/Not Resolved]
  - Alanine aminotransferase increased [Unknown]

NARRATIVE: CASE EVENT DATE: 20220101
